FAERS Safety Report 7705260-7 (Version None)
Quarter: 2011Q3

REPORT INFORMATION
  Report Type: 
  Country: None (occurrence: None)
  Receive Date: 20110818
  Receipt Date: 20110802
  Transmission Date: 20111222
  Serious: Yes (Hospitalization, Other)
  Sender: FDA-Public Use
  Company Number: 2011MA010846

PATIENT
  Age: 22 Year
  Sex: Female

DRUGS (3)
  1. PHENYTOIN [Suspect]
     Indication: BRAIN NEOPLASM
     Dosage: 100 MG; Q8H
  2. DEXAMETHASONE [Suspect]
     Indication: BRAIN NEOPLASM
     Dosage: 2 GM; Q8H
  3. VANCOMYCIN [Suspect]
     Indication: BRAIN NEOPLASM
     Dosage: 1 GM; Q12H

REACTIONS (5)
  - ORAL DISORDER [None]
  - RED MAN SYNDROME [None]
  - RASH [None]
  - STEVENS-JOHNSON SYNDROME [None]
  - ERYTHEMA [None]
